FAERS Safety Report 9227151 (Version 2)
Quarter: 2013Q2

REPORT INFORMATION
  Report Type: Spontaneous
  Country: BR (occurrence: BR)
  Receive Date: 20130412
  Receipt Date: 20130422
  Transmission Date: 20140414
  Serious: Yes (Hospitalization, Other)
  Sender: FDA-Public Use
  Company Number: BR-JNJFOC-20130402834

PATIENT
  Age: 21 Year
  Sex: Male
  Weight: 38 kg

DRUGS (6)
  1. REMICADE [Suspect]
     Indication: CROHN^S DISEASE
     Route: 042
     Dates: start: 20130403
  2. REMICADE [Suspect]
     Indication: CROHN^S DISEASE
     Route: 042
     Dates: start: 201212
  3. ACETYLSALICYLIC ACID [Concomitant]
     Indication: COAGULOPATHY
     Route: 065
  4. FOLIC ACID [Concomitant]
     Indication: SICKLE CELL TRAIT
     Route: 065
  5. IRON [Concomitant]
     Indication: SICKLE CELL TRAIT
     Route: 065
  6. AZATHIOPRINE [Concomitant]
     Dosage: FOR 2 MONTHS
     Route: 065

REACTIONS (4)
  - Cellulitis [Recovering/Resolving]
  - Weight decreased [Recovering/Resolving]
  - Tachycardia [Recovering/Resolving]
  - Cough [Recovering/Resolving]
